FAERS Safety Report 24359923 (Version 1)
Quarter: 2024Q3

REPORT INFORMATION
  Report Type: Spontaneous
  Country: CN (occurrence: CN)
  Receive Date: 20240925
  Receipt Date: 20240925
  Transmission Date: 20241016
  Serious: Yes (Hospitalization, Other)
  Sender: SANOFI AVENTIS
  Company Number: CN-SA-2024SA272507

PATIENT
  Age: 74 Year
  Sex: Female
  Weight: 65 kg

DRUGS (1)
  1. INSULIN GLARGINE [Suspect]
     Active Substance: INSULIN GLARGINE
     Indication: Diabetes mellitus
     Dosage: 8 U, QD
     Route: 058
     Dates: start: 20240901, end: 20240912

REACTIONS (5)
  - Lacunar infarction [Unknown]
  - Cerebral atrophy [Unknown]
  - Hypoglycaemia [Recovering/Resolving]
  - Muscle twitching [Unknown]
  - Somnolence [Unknown]

NARRATIVE: CASE EVENT DATE: 20240912
